FAERS Safety Report 4487418-6 (Version None)
Quarter: 2004Q4

REPORT INFORMATION
  Report Type: 
  Country: None (occurrence: None)
  Receive Date: 20041027
  Receipt Date: 20041021
  Transmission Date: 20050328
  Serious: Yes (Hospitalization)
  Sender: FDA-Public Use
  Company Number: US-MERCK-0410USA03300

PATIENT
  Age: 82 Year
  Sex: Female

DRUGS (4)
  1. VIOXX [Suspect]
     Indication: ARTHRITIS
     Route: 048
     Dates: start: 20000101, end: 20040930
  2. ACIPHEX [Concomitant]
     Route: 065
  3. TAMOXIFEN CITRATE [Concomitant]
     Route: 065
  4. GASTROINTESTINAL PREPARATIONS (UNSPECIFIED) [Concomitant]
     Indication: GASTROOESOPHAGEAL REFLUX DISEASE
     Route: 048

REACTIONS (4)
  - CEREBROVASCULAR ACCIDENT [None]
  - FALL [None]
  - PELVIC FRACTURE [None]
  - UPPER LIMB FRACTURE [None]
